FAERS Safety Report 16830638 (Version 1)
Quarter: 2019Q3

REPORT INFORMATION
  Report Type: Spontaneous
  Country: US (occurrence: US)
  Receive Date: 20190920
  Receipt Date: 20190920
  Transmission Date: 20191005
  Serious: No
  Sender: FDA-Public Use
  Company Number: US-JNJFOC-20190916719

PATIENT
  Sex: Male

DRUGS (1)
  1. TYLENOL EXTRA STRENGTH [Suspect]
     Active Substance: ACETAMINOPHEN
     Indication: PRODUCT USED FOR UNKNOWN INDICATION
     Dosage: TOTAL OF 9 PILLS IN ONE 24 HOUR PERIOD, IT WAS OVER THE 4000MG DAILY LIMIT
     Route: 048
     Dates: start: 201909

REACTIONS (1)
  - Overdose [Unknown]

NARRATIVE: CASE EVENT DATE: 201909
